FAERS Safety Report 24275888 (Version 1)
Quarter: 2024Q3

REPORT INFORMATION
  Report Type: Spontaneous
  Country: ES (occurrence: ES)
  Receive Date: 20240903
  Receipt Date: 20240903
  Transmission Date: 20241017
  Serious: Yes (Hospitalization, Other)
  Sender: AUROBINDO
  Company Number: ES-AEMPS-1563194

PATIENT
  Age: 91 Year
  Sex: Female

DRUGS (2)
  1. PREGABALIN [Suspect]
     Active Substance: PREGABALIN
     Indication: Fracture pain
     Dosage: 175 MILLIGRAM, ONCE A DAY(50MG -75MG -50MG)
     Route: 048
     Dates: start: 20240612, end: 20240614
  2. METHADONE HYDROCHLORIDE [Suspect]
     Active Substance: METHADONE HYDROCHLORIDE
     Indication: Fracture pain
     Dosage: 2.5 MILLIGRAM, TWO TIMES A DAY(2.5,MG CADA 12 HORAS)
     Route: 048
     Dates: start: 20240612, end: 20240614

REACTIONS (3)
  - Somnolence [Recovered/Resolved]
  - Hypoxia [Recovered/Resolved]
  - Pneumonia aspiration [Recovered/Resolved]

NARRATIVE: CASE EVENT DATE: 20240614
